FAERS Safety Report 11930250 (Version 3)
Quarter: 2017Q2

REPORT INFORMATION
  Report Type: Spontaneous
  Country: US (occurrence: US)
  Receive Date: 20160120
  Receipt Date: 20170426
  Transmission Date: 20170829
  Serious: Yes (Other)
  Sender: FDA-Public Use
  Company Number: US-SA-2016SA004641

PATIENT
  Age: 60 Year
  Sex: Female

DRUGS (6)
  1. LISINOPRIL. [Concomitant]
     Active Substance: LISINOPRIL
     Indication: HYPERTENSION
  2. LEUCOVORIN. [Suspect]
     Active Substance: LEUCOVORIN
     Indication: ADENOCARCINOMA OF COLON
     Route: 065
     Dates: start: 201210
  3. LISINOPRIL. [Concomitant]
     Active Substance: LISINOPRIL
     Indication: HYPERTENSION
  4. FLUOROURACIL. [Suspect]
     Active Substance: FLUOROURACIL
     Indication: ADENOCARCINOMA OF COLON
     Dosage: FU 2400 MG/M2 IV ADMINISTERED OVER 46 HOURS
     Route: 042
  5. FLUOROURACIL. [Suspect]
     Active Substance: FLUOROURACIL
     Indication: ADENOCARCINOMA OF COLON
     Dosage: FU ADMINISTERED AS IV PUSH
     Route: 042
     Dates: start: 201210
  6. OXALIPLATIN. [Suspect]
     Active Substance: OXALIPLATIN
     Indication: ADENOCARCINOMA OF COLON
     Route: 065
     Dates: start: 201210

REACTIONS (14)
  - Factor VII deficiency [Unknown]
  - Coagulopathy [Recovering/Resolving]
  - Blood fibrinogen increased [Recovering/Resolving]
  - Pancytopenia [Unknown]
  - Haemoglobin decreased [Unknown]
  - Fibrin D dimer increased [Recovering/Resolving]
  - Platelet count decreased [Unknown]
  - Mucosal inflammation [Unknown]
  - White blood cell count decreased [Unknown]
  - Dehydration [Unknown]
  - Neutrophil count decreased [Unknown]
  - Oesophagitis [Unknown]
  - Prothrombin time prolonged [Recovering/Resolving]
  - International normalised ratio increased [Recovering/Resolving]

NARRATIVE: CASE EVENT DATE: 2012
